FAERS Safety Report 7361907-9 (Version None)
Quarter: 2011Q1

REPORT INFORMATION
  Report Type: 
  Country: None (occurrence: None)
  Receive Date: 20110318
  Receipt Date: 20110311
  Transmission Date: 20110831
  Serious: Yes (Death, Hospitalization)
  Sender: FDA-Public Use
  Company Number: CO-BRISTOL-MYERS SQUIBB COMPANY-15593528

PATIENT
  Age: 6 Month
  Sex: Male

DRUGS (7)
  1. IBUPROFEN [Suspect]
     Indication: OTITIS MEDIA ACUTE
  2. VANCOMYCIN [Suspect]
  3. AMOXICILLIN [Suspect]
     Indication: OTITIS MEDIA ACUTE
  4. CLINDAMYCIN [Suspect]
  5. PIPERACILLIN + TAZOBACTAM [Suspect]
  6. MEROPENEM [Suspect]
  7. AMIKACIN SULFATE [Suspect]

REACTIONS (12)
  - ILEAL PERFORATION [None]
  - NECROTISING FASCIITIS [None]
  - LEUKOPENIA [None]
  - ANAEMIA [None]
  - THROMBOCYTOPENIA [None]
  - RESPIRATORY FAILURE [None]
  - DISSEMINATED INTRAVASCULAR COAGULATION [None]
  - PSEUDOMONAS INFECTION [None]
  - ACUTE RESPIRATORY DISTRESS SYNDROME [None]
  - PNEUMONIA [None]
  - MULTI-ORGAN FAILURE [None]
  - SEPTIC SHOCK [None]
